FAERS Safety Report 12920898 (Version 1)
Quarter: 2016Q4

REPORT INFORMATION
  Report Type: Spontaneous
  Country: US (occurrence: US)
  Receive Date: 20161107
  Receipt Date: 20161107
  Transmission Date: 20170207
  Serious: No
  Sender: FDA-Public Use
  Company Number: None

PATIENT
  Age: 66 Year
  Sex: Female
  Weight: 63 kg

DRUGS (9)
  1. LEVOTHYROXINE. [Concomitant]
     Active Substance: LEVOTHYROXINE
  2. PANTAPRAZOLE [Concomitant]
     Active Substance: PANTOPRAZOLE SODIUM
  3. COQ10 [Concomitant]
     Active Substance: UBIDECARENONE
  4. PROLIA [Suspect]
     Active Substance: DENOSUMAB
     Indication: OSTEOPOROSIS
     Route: 058
     Dates: start: 20160720, end: 20160720
  5. PAROXETINE. [Concomitant]
     Active Substance: PAROXETINE
  6. MULTI-VITAMIN [Concomitant]
     Active Substance: .ALPHA.-TOCOPHEROL ACETATE, DL-\ASCORBIC ACID\CYANOCOBALAMIN\FLUORIDE ION\FOLIC ACID\NIACIN\PYRIDOXINE\RIBOFLAVIN\THIAMINE\VITAMIN A\VITAMIN D
  7. CALCIUM WITH D [Concomitant]
     Active Substance: CALCIUM\VITAMIN D
  8. VITAMIN C [Concomitant]
     Active Substance: ASCORBIC ACID
  9. LOVASTATIN. [Concomitant]
     Active Substance: LOVASTATIN

REACTIONS (10)
  - Insomnia [None]
  - Depression [None]
  - Oesophageal spasm [None]
  - Asthenia [None]
  - Cystitis [None]
  - Chest pain [None]
  - Urticaria [None]
  - Contusion [None]
  - Pain [None]
  - Bone pain [None]

NARRATIVE: CASE EVENT DATE: 20160723
